FAERS Safety Report 8601524-3 (Version None)
Quarter: 2012Q3

REPORT INFORMATION
  Report Type: 
  Country: None (occurrence: None)
  Receive Date: 20120817
  Receipt Date: 20120810
  Transmission Date: 20120928
  Serious: Yes (Other)
  Sender: FDA-Public Use
  Company Number: US-CELGENEUS-163-21880-12081416

PATIENT
  Sex: Male
  Weight: 108.96 kg

DRUGS (9)
  1. REVLIMID [Suspect]
     Indication: MULTIPLE MYELOMA
     Dosage: 10 MILLIGRAM
     Route: 048
     Dates: start: 20111025
  2. CALCIUM WITH VITAMIN D [Concomitant]
     Route: 065
  3. VITAMIN D [Concomitant]
     Route: 065
  4. AVODART [Concomitant]
     Route: 065
  5. ZOMETA [Suspect]
     Route: 065
  6. DECADRON PHOSPHATE [Concomitant]
     Route: 065
  7. COUMADIN [Concomitant]
     Route: 065
  8. DOXAZOSIN MESYLATE [Concomitant]
     Route: 065
  9. LASIX [Concomitant]
     Route: 065

REACTIONS (2)
  - BONE DISORDER [None]
  - PLATELET COUNT DECREASED [None]
